FAERS Safety Report 9278766 (Version 1)
Quarter: 2013Q2

REPORT INFORMATION
  Report Type: Spontaneous
  Country: US (occurrence: None)
  Receive Date: 20130506
  Receipt Date: 20130506
  Transmission Date: 20140414
  Serious: Yes (Life-Threatening, Hospitalization)
  Sender: FDA-Public Use
  Company Number: None

PATIENT
  Age: 63 Year
  Sex: Male
  Weight: 83.4 kg

DRUGS (1)
  1. ASPIRIN [Suspect]
     Indication: FATIGUE
     Dosage: OTHER
     Route: 048
     Dates: start: 20130401, end: 20130501

REACTIONS (1)
  - Gastric haemorrhage [None]
